FAERS Safety Report 4349313-2 (Version None)
Quarter: 2004Q2

REPORT INFORMATION
  Report Type: 
  Country: None (occurrence: None)
  Receive Date: 20040426
  Receipt Date: 20040409
  Transmission Date: 20050107
  Serious: Yes (Other)
  Sender: FDA-Public Use
  Company Number: 2004-04-0452

PATIENT
  Age: 37 Year
  Sex: Female

DRUGS (4)
  1. CLARITIN [Suspect]
     Indication: RHINITIS
     Dosage: 10 MG ORAL
     Route: 048
     Dates: start: 20031201
  2. SINGULAIR [Suspect]
     Indication: ASTHMA
     Dosage: 10 MG ORAL
     Route: 048
     Dates: start: 20031201
  3. SPIROPENT [Suspect]
     Indication: ASTHMA
     Dosage: 40MCG/DAY
     Dates: start: 20031201
  4. AMBROXOL HYDROCHLORIDE [Suspect]
     Indication: ASTHMA
     Dosage: 10MG/DAY ORAL
     Route: 048
     Dates: start: 20031201

REACTIONS (5)
  - ABORTION SPONTANEOUS [None]
  - COMPLICATIONS OF MATERNAL EXPOSURE TO THERAPEUTIC DRUGS [None]
  - MATERNAL DRUGS AFFECTING FOETUS [None]
  - PREGNANCY [None]
  - STRIDOR [None]
